FAERS Safety Report 8746166 (Version 3)
Quarter: 2014Q2

REPORT INFORMATION
  Report Type: Spontaneous
  Country: US (occurrence: US)
  Receive Date: 20120827
  Receipt Date: 20140516
  Transmission Date: 20141212
  Serious: Yes (Hospitalization)
  Sender: FDA-Public Use
  Company Number: US-BAYER-2012-085936

PATIENT
  Age: 36 Year
  Sex: Female
  Weight: 49.89 kg

DRUGS (4)
  1. OCELLA [Suspect]
     Indication: CONTRACEPTION
     Dosage: UNK
     Dates: start: 200901, end: 20101007
  2. OCELLA [Suspect]
     Indication: ACNE
  3. TAZORAC [Concomitant]
     Indication: ACNE
     Dosage: UNK
     Dates: start: 200906
  4. DEXAMETHASONE [Concomitant]
     Dosage: 4 MG, UNK
     Route: 048

REACTIONS (2)
  - Pulmonary embolism [Recovered/Resolved]
  - Deep vein thrombosis [None]
